FAERS Safety Report 8544803-0 (Version None)
Quarter: 2012Q3

REPORT INFORMATION
  Report Type: 
  Country: None (occurrence: None)
  Receive Date: 20120727
  Receipt Date: 20120720
  Transmission Date: 20120928
  Serious: Yes (Hospitalization, Other)
  Sender: FDA-Public Use
  Company Number: US-ABBOTT-12P-163-0956965-00

PATIENT
  Sex: Female

DRUGS (2)
  1. HUMIRA [Suspect]
     Route: 058
     Dates: start: 20120301, end: 20120501
  2. HUMIRA [Suspect]
     Indication: CROHN'S DISEASE
     Route: 058
     Dates: start: 20110101, end: 20120301

REACTIONS (16)
  - POST PROCEDURAL COMPLICATION [None]
  - PREMATURE LABOUR [None]
  - MATERNAL EXPOSURE DURING PREGNANCY [None]
  - ABDOMINAL ADHESIONS [None]
  - HYPOGLYCAEMIA [None]
  - PARENTERAL NUTRITION [None]
  - LARGE INTESTINE PERFORATION [None]
  - INFLAMMATION [None]
  - INTESTINAL OBSTRUCTION [None]
  - GASTROINTESTINAL DISORDER [None]
  - IMPAIRED HEALING [None]
  - SCAR [None]
  - PREGNANCY [None]
  - CAESAREAN SECTION [None]
  - DEVICE OCCLUSION [None]
  - INFECTION [None]
